FAERS Safety Report 11509690 (Version 1)
Quarter: 2015Q3

REPORT INFORMATION
  Report Type: Spontaneous
  Country: US (occurrence: US)
  Receive Date: 20150915
  Receipt Date: 20150915
  Transmission Date: 20151125
  Serious: No
  Sender: FDA-Public Use
  Company Number: US-JNJFOC-20150707736

PATIENT
  Age: 90 Year
  Sex: Male
  Weight: 113.4 kg

DRUGS (2)
  1. TYLENOL EXTRA STRENGTH [Suspect]
     Active Substance: ACETAMINOPHEN
     Indication: NEURALGIA
     Route: 048
  2. ALEVE [Concomitant]
     Active Substance: NAPROXEN SODIUM
     Indication: PRODUCT USED FOR UNKNOWN INDICATION
     Dosage: AT NIGHT
     Route: 065

REACTIONS (4)
  - Product packaging issue [Unknown]
  - Product use issue [Unknown]
  - Incorrect product storage [Unknown]
  - Drug ineffective for unapproved indication [Unknown]
